FAERS Safety Report 17025197 (Version 1)
Quarter: 2019Q4

REPORT INFORMATION
  Report Type: Spontaneous
  Country: US (occurrence: US)
  Receive Date: 20191112
  Receipt Date: 20191112
  Transmission Date: 20200122
  Serious: Yes (Other)
  Sender: FDA-Public Use
  Company Number: None

PATIENT
  Age: 57 Year
  Weight: 95.25 kg

DRUGS (2)
  1. COSENTYX [Suspect]
     Active Substance: SECUKINUMAB
  2. COSENTYX [Suspect]
     Active Substance: SECUKINUMAB
     Dates: start: 20190520, end: 20191112

REACTIONS (2)
  - Precancerous mucosal lesion [None]
  - Tongue neoplasm malignant stage unspecified [None]

NARRATIVE: CASE EVENT DATE: 20191112
